FAERS Safety Report 5929317-6 (Version None)
Quarter: 2008Q4

REPORT INFORMATION
  Report Type: 
  Country: None (occurrence: None)
  Receive Date: 20081023
  Receipt Date: 20081023
  Transmission Date: 20090506
  Serious: No
  Sender: FDA-Public Use
  Company Number: None

PATIENT
  Age: 54 Year
  Sex: Male

DRUGS (1)
  1. ETANERCEPT [Suspect]
     Indication: RHEUMATOID ARTHRITIS
     Dosage: 50 MG SD QWEEK

REACTIONS (3)
  - INFECTION IN AN IMMUNOCOMPROMISED HOST [None]
  - LISTERIOSIS [None]
  - MENINGITIS BACTERIAL [None]
